FAERS Safety Report 5213684-5 (Version None)
Quarter: 2007Q1

REPORT INFORMATION
  Report Type: 
  Country: None (occurrence: None)
  Receive Date: 20070119
  Receipt Date: 20070110
  Transmission Date: 20070707
  Serious: Yes (Other)
  Sender: FDA-Public Use
  Company Number: US-PFIZER INC-2007003510

PATIENT
  Sex: Female
  Weight: 92.1 kg

DRUGS (16)
  1. CHANTIX [Suspect]
     Indication: SMOKING CESSATION THERAPY
  2. ACTOS [Concomitant]
  3. LANTUS [Concomitant]
  4. KLONOPIN [Concomitant]
  5. TRILEPTAL [Concomitant]
  6. RISPERDAL [Concomitant]
     Indication: POST-TRAUMATIC STRESS DISORDER
  7. BUSPAR [Concomitant]
  8. CELEXA [Concomitant]
  9. CLARITIN [Concomitant]
  10. COMBIVENT [Concomitant]
  11. ALDACTAZIDE [Concomitant]
  12. LASIX [Concomitant]
  13. POTASSIUM ACETATE [Concomitant]
  14. NEXIUM [Concomitant]
  15. METHADONE HCL [Concomitant]
  16. PERCOCET [Concomitant]

REACTIONS (2)
  - ABNORMAL DREAMS [None]
  - HALLUCINATION, TACTILE [None]
